FAERS Safety Report 17636780 (Version 1)
Quarter: 2020Q2

REPORT INFORMATION
  Report Type: Report from Study
  Country: US (occurrence: US)
  Receive Date: 20200407
  Receipt Date: 20200407
  Transmission Date: 20200713
  Serious: Yes (Other)
  Sender: FDA-Public Use
  Company Number: US-EMD SERONO-E2B_90019628

PATIENT
  Sex: Female

DRUGS (2)
  1. REBIF [Suspect]
     Active Substance: INTERFERON BETA-1A
     Dosage: REBIF PREFILLED SYRINGE.
     Route: 058
     Dates: start: 20190606
  2. REBIF [Suspect]
     Active Substance: INTERFERON BETA-1A
     Indication: PRODUCT USED FOR UNKNOWN INDICATION
     Dosage: REBIF PREFILLED SYRINGE.
     Route: 058
     Dates: start: 20130322

REACTIONS (7)
  - Loss of consciousness [Unknown]
  - Impaired driving ability [Not Recovered/Not Resolved]
  - Muscle spasms [Not Recovered/Not Resolved]
  - Injection site indentation [Recovered/Resolved]
  - Injection site urticaria [Recovered/Resolved]
  - Lack of injection site rotation [Not Recovered/Not Resolved]
  - Muscular weakness [Not Recovered/Not Resolved]
